FAERS Safety Report 13586943 (Version 1)
Quarter: 2017Q2

REPORT INFORMATION
  Report Type: Spontaneous
  Country: US (occurrence: US)
  Receive Date: 20170526
  Receipt Date: 20170526
  Transmission Date: 20170830
  Serious: No
  Sender: FDA-Public Use
  Company Number: US-ROCHE-1422442

PATIENT
  Sex: Male

DRUGS (1)
  1. VALCYTE [Suspect]
     Active Substance: VALGANCICLOVIR HYDROCHLORIDE
     Indication: CHRONIC FATIGUE SYNDROME
     Route: 048
     Dates: start: 2014

REACTIONS (5)
  - Sleep disorder [Not Recovered/Not Resolved]
  - Frequent bowel movements [Recovered/Resolved]
  - Fatigue [Recovering/Resolving]
  - Somnolence [Recovering/Resolving]
  - Faeces discoloured [Recovered/Resolved]
